FAERS Safety Report 6168944-0 (Version None)
Quarter: 2009Q2

REPORT INFORMATION
  Report Type: 
  Country: None (occurrence: None)
  Receive Date: 20090427
  Receipt Date: 20090421
  Transmission Date: 20091009
  Serious: Yes (Other)
  Sender: FDA-Public Use
  Company Number: US-JNJFOC-20090405392

PATIENT
  Sex: Female

DRUGS (2)
  1. MOTRIN [Suspect]
  2. MOTRIN [Suspect]
     Indication: DRUG USE FOR UNKNOWN INDICATION
     Dosage: 800 MG 8-10 TIMES/DAY FOR 3 YEARS

REACTIONS (3)
  - HEPATOMEGALY [None]
  - INTENTIONAL OVERDOSE [None]
  - KIDNEY ENLARGEMENT [None]
